FAERS Safety Report 17205069 (Version 1)
Quarter: 2019Q4

REPORT INFORMATION
  Report Type: Spontaneous
  Country: US (occurrence: US)
  Receive Date: 20191227
  Receipt Date: 20191227
  Transmission Date: 20200122
  Serious: No
  Sender: FDA-Public Use
  Company Number: US-JNJFOC-20191226943

PATIENT
  Sex: Female
  Weight: 79.45 kg

DRUGS (1)
  1. WOMENS ROGAINE [Suspect]
     Active Substance: MINOXIDIL
     Indication: PRODUCT USED FOR UNKNOWN INDICATION
     Dosage: FILL IT TO THE LINE IN THE TUBE AND 2X A DAY?THE PRODUCT WAS LAST ADMINISTERED ON 16/DEC/2019.
     Route: 061
     Dates: start: 20190109

REACTIONS (1)
  - Alopecia [Unknown]

NARRATIVE: CASE EVENT DATE: 2019
